FAERS Safety Report 9842765 (Version 1)
Quarter: 2013Q4

REPORT INFORMATION
  Report Type: Spontaneous
  Country: US (occurrence: None)
  Receive Date: 20131223
  Receipt Date: 20131223
  Transmission Date: 20140711
  Serious: No
  Sender: FDA-Public Use
  Company Number: 222189LEO

PATIENT
  Sex: Male

DRUGS (1)
  1. PICATO (0.05%, GEL) [Suspect]
     Indication: ACTINIC KERATOSIS
     Dosage: 1 IN 1 D, TOPICAL
     Route: 061

REACTIONS (3)
  - Application site pustules [None]
  - Application site infection [None]
  - Drug administered at inappropriate site [None]
